FAERS Safety Report 25180774 (Version 1)
Quarter: 2025Q2

REPORT INFORMATION
  Report Type: Spontaneous
  Country: CH (occurrence: CH)
  Receive Date: 20250409
  Receipt Date: 20250409
  Transmission Date: 20250716
  Serious: Yes (Hospitalization, Other)
  Sender: AZURITY PHARMACEUTICALS
  Company Number: CH-AZURITY PHARMACEUTICALS, INC.-AZR202503-001006

PATIENT
  Age: 69 Year
  Sex: Female
  Weight: 48.2 kg

DRUGS (5)
  1. EDARBYCLOR [Suspect]
     Active Substance: AZILSARTAN KAMEDOXOMIL\CHLORTHALIDONE
     Indication: Hypertension
     Route: 048
     Dates: start: 202501, end: 202503
  2. ESCITALOPRAM OXALATE [Suspect]
     Active Substance: ESCITALOPRAM OXALATE
     Indication: Depression
     Route: 048
     Dates: end: 202503
  3. ELIQUIS [Concomitant]
     Active Substance: APIXABAN
     Indication: Product used for unknown indication
     Route: 065
  4. ESTRIOL [Concomitant]
     Active Substance: ESTRIOL
     Indication: Product used for unknown indication
     Route: 065
  5. LACTIC ACID, DL-\SODIUM LACTATE [Concomitant]
     Active Substance: LACTIC ACID, DL-\SODIUM LACTATE
     Indication: Product used for unknown indication
     Route: 065

REACTIONS (2)
  - Agitation [Recovered/Resolved]
  - Hyponatraemia [Recovering/Resolving]

NARRATIVE: CASE EVENT DATE: 20250302
